FAERS Safety Report 12791154 (Version 1)
Quarter: 2016Q3

REPORT INFORMATION
  Report Type: Report from Study
  Country: US (occurrence: US)
  Receive Date: 20160929
  Receipt Date: 20160929
  Transmission Date: 20161109
  Serious: Yes (Other)
  Sender: FDA-Public Use
  Company Number: US-ROCHE-1008560

PATIENT
  Age: 63 Year
  Sex: Female
  Weight: 68.5 kg

DRUGS (9)
  1. BEVACIZUMAB [Suspect]
     Active Substance: BEVACIZUMAB
     Dosage: MAINTENANCE THERAPY (CYCLES 7+)?ALSO RECEIVED ON 23/NOV/2011, 14/DEC/2011, 04/JAN/2012,5/JAN/2012, 1
     Route: 042
     Dates: start: 20111102
  2. ALLEGRA [Concomitant]
     Active Substance: FEXOFENADINE HYDROCHLORIDE
  3. BEVACIZUMAB [Suspect]
     Active Substance: BEVACIZUMAB
     Indication: ENDOMETRIAL CANCER
     Dosage: ALSO RECEIVED ON 29/JUN/2011, 20/JUL/2011, 10/AUG/2011, 31/AUG/2011, 28/SEP/2011
     Route: 042
     Dates: start: 20110608
  4. TRAVATAN [Concomitant]
     Active Substance: TRAVOPROST
  5. ZOFRAN [Concomitant]
     Active Substance: ONDANSETRON HYDROCHLORIDE
  6. PACLITAXEL. [Suspect]
     Active Substance: PACLITAXEL
     Indication: ENDOMETRIAL CANCER
     Route: 042
     Dates: start: 20110608
  7. ATENOLOL. [Concomitant]
     Active Substance: ATENOLOL
  8. TIMOLOL. [Concomitant]
     Active Substance: TIMOLOL
  9. CARBOPLATIN. [Suspect]
     Active Substance: CARBOPLATIN
     Indication: ENDOMETRIAL CANCER
     Route: 042
     Dates: start: 20110608

REACTIONS (6)
  - Anaemia [Recovering/Resolving]
  - Hyperglycaemia [Unknown]
  - Neutrophil count decreased [Unknown]
  - Platelet count decreased [Unknown]
  - Anaemia [Unknown]
  - Hypophosphataemia [Unknown]

NARRATIVE: CASE EVENT DATE: 20111012
